FAERS Safety Report 10144172 (Version 1)
Quarter: 2014Q2

REPORT INFORMATION
  Report Type: Spontaneous
  Country: GB (occurrence: GB)
  Receive Date: 20140430
  Receipt Date: 20140430
  Transmission Date: 20141212
  Serious: Yes (Other)
  Sender: FDA-Public Use
  Company Number: PHHY2014GB049350

PATIENT
  Age: 76 Year
  Sex: Male

DRUGS (7)
  1. WARFARIN [Suspect]
     Dosage: 3 MG, UNK
  2. VERAPAMIL [Concomitant]
  3. GLYCERYL TRINITRATE [Concomitant]
  4. FRUSEMIDE [Concomitant]
  5. CARBOCISTEINE [Concomitant]
  6. SALBUTAMOL [Concomitant]
  7. ATROVENT [Concomitant]

REACTIONS (5)
  - Hyphaema [Recovered/Resolved]
  - Glaucoma [Recovered/Resolved]
  - Visual acuity reduced [Recovered/Resolved]
  - Ocular discomfort [Recovered/Resolved]
  - Vision blurred [Recovered/Resolved]
